FAERS Safety Report 4894882-7 (Version None)
Quarter: 2006Q1

REPORT INFORMATION
  Report Type: 
  Country: None (occurrence: None)
  Receive Date: 20060130
  Receipt Date: 20050119
  Transmission Date: 20060701
  Serious: No
  Sender: FDA-Public Use
  Company Number: US-BRISTOL-MYERS SQUIBB COMPANY-12829990

PATIENT
  Age: 65 Year
  Sex: Female

DRUGS (1)
  1. METFORMIN HCL [Suspect]

REACTIONS (3)
  - DIZZINESS [None]
  - FATIGUE [None]
  - INSOMNIA [None]
